FAERS Safety Report 5384506-7 (Version None)
Quarter: 2007Q3

REPORT INFORMATION
  Report Type: 
  Country: None (occurrence: None)
  Receive Date: 20070711
  Receipt Date: 20061004
  Transmission Date: 20080115
  Serious: No
  Sender: FDA-Public Use
  Company Number: US-AMGEN-US195907

PATIENT
  Sex: Female

DRUGS (2)
  1. KINERET [Suspect]
     Indication: RHEUMATOID ARTHRITIS
     Route: 058
     Dates: start: 20051201
  2. METHOTREXATE [Concomitant]
     Route: 048
     Dates: start: 20051001

REACTIONS (2)
  - PHARYNGOLARYNGEAL PAIN [None]
  - RHEUMATOID ARTHRITIS [None]
